FAERS Safety Report 5280783-1 (Version None)
Quarter: 2007Q1

REPORT INFORMATION
  Report Type: 
  Country: None (occurrence: None)
  Receive Date: 20070329
  Receipt Date: 20070319
  Transmission Date: 20070707
  Serious: Yes (Other)
  Sender: FDA-Public Use
  Company Number: AR-PFIZER INC-2007020067

PATIENT
  Age: 82 Year
  Sex: Female
  Weight: 68 kg

DRUGS (1)
  1. ZITHROMAX [Suspect]
     Indication: KAPOSI'S SARCOMA
     Route: 048

REACTIONS (2)
  - HAEMORRHAGE [None]
  - MEDICATION ERROR [None]
